FAERS Safety Report 17913031 (Version 4)
Quarter: 2020Q3

REPORT INFORMATION
  Report Type: Spontaneous
  Country: PL (occurrence: PL)
  Receive Date: 20200618
  Receipt Date: 20200716
  Transmission Date: 20201103
  Serious: Yes (Hospitalization)
  Sender: FDA-Public Use
  Company Number: NVSC2020PL169595

PATIENT
  Age: 42 Year
  Sex: Female

DRUGS (20)
  1. DULOXETINE. [Interacting]
     Active Substance: DULOXETINE
     Dosage: 90 MILLIGRAM DAILY;
     Route: 065
  2. CIPROFLOXACIN. [Interacting]
     Active Substance: CIPROFLOXACIN
     Dosage: 1000 MILLIGRAM DAILY;
     Route: 048
  3. DIMENHYDRINATE. [Suspect]
     Active Substance: DIMENHYDRINATE
     Indication: VOMITING
     Dosage: UNK
     Route: 065
  4. QUETIAPINE. [Suspect]
     Active Substance: QUETIAPINE
     Indication: PRODUCT USED FOR UNKNOWN INDICATION
     Dosage: 25 MG, QD, BEFORE SLEEP
     Route: 065
  5. METOCLOPRAMIDE. [Suspect]
     Active Substance: METOCLOPRAMIDE
     Indication: NAUSEA
  6. PERINDOPRIL [Concomitant]
     Active Substance: PERINDOPRIL
     Indication: HYPERTENSION
     Route: 065
  7. CIPROFLOXACIN. [Interacting]
     Active Substance: CIPROFLOXACIN
     Indication: PRODUCT USED FOR UNKNOWN INDICATION
     Dosage: 500 MG, BID
     Route: 048
  8. MORPHINE [Suspect]
     Active Substance: MORPHINE
     Indication: PRODUCT USED FOR UNKNOWN INDICATION
     Dosage: 160 MG
     Route: 065
  9. OLANZAPINE. [Suspect]
     Active Substance: OLANZAPINE
     Dosage: 10 MG, QD
     Route: 065
  10. DEXAMETHASONE. [Suspect]
     Active Substance: DEXAMETHASONE
     Indication: NAUSEA
  11. DULOXETINE. [Interacting]
     Active Substance: DULOXETINE
     Indication: PRODUCT USED FOR UNKNOWN INDICATION
     Dosage: 90 MG, QD
     Route: 065
  12. OLANZAPINE. [Suspect]
     Active Substance: OLANZAPINE
     Indication: VOMITING
     Dosage: 5 MG, QD
     Route: 065
  13. METOCLOPRAMIDE. [Suspect]
     Active Substance: METOCLOPRAMIDE
     Indication: VOMITING
     Dosage: UNK
     Route: 065
  14. PREGABALIN. [Suspect]
     Active Substance: PREGABALIN
     Indication: PRODUCT USED FOR UNKNOWN INDICATION
     Dosage: 300 MG, QD
     Route: 065
  15. DEXAMETHASONE. [Suspect]
     Active Substance: DEXAMETHASONE
     Indication: VOMITING
     Dosage: UNK
     Route: 065
  16. MIDAZOLAM. [Concomitant]
     Active Substance: MIDAZOLAM
     Indication: PRODUCT USED FOR UNKNOWN INDICATION
     Dosage: 5 MG
     Route: 042
  17. QUETIAPINE. [Interacting]
     Active Substance: QUETIAPINE
     Dosage: 25 MILLIGRAM DAILY; AT NIGHT
     Route: 065
  18. AMLODIPINE [Interacting]
     Active Substance: AMLODIPINE BESYLATE
     Indication: HYPERTENSION
     Dosage: 1 DF, QD
     Route: 065
  19. AMLODIPINE [Interacting]
     Active Substance: AMLODIPINE BESYLATE
     Dosage: 10 MG
     Route: 065
  20. DIMENHYDRINATE. [Suspect]
     Active Substance: DIMENHYDRINATE
     Indication: NAUSEA

REACTIONS (13)
  - Urinary retention [Unknown]
  - Paraesthesia [Unknown]
  - Nausea [Unknown]
  - Thirst [Unknown]
  - Off label use [Unknown]
  - Dysuria [Unknown]
  - Tinnitus [Unknown]
  - Polydipsia [Unknown]
  - Anxiety [Unknown]
  - Restlessness [Unknown]
  - Drug ineffective [Unknown]
  - Drug interaction [Unknown]
  - Vomiting [Unknown]
